FAERS Safety Report 23108927 (Version 2)
Quarter: 2024Q1

REPORT INFORMATION
  Report Type: Spontaneous
  Country: US (occurrence: None)
  Receive Date: 20231026
  Receipt Date: 20240104
  Transmission Date: 20240410
  Serious: No
  Sender: FDA-Public Use
  Company Number: 2023A241742

PATIENT
  Age: 22165 Day
  Sex: Female

DRUGS (1)
  1. BYETTA [Suspect]
     Active Substance: EXENATIDE
     Dosage: 250 MCG/1.2 ML
     Route: 058

REACTIONS (4)
  - Blood glucose fluctuation [Not Recovered/Not Resolved]
  - Drug dose omission by device [Unknown]
  - Wrong technique in device usage process [Unknown]
  - Device defective [Unknown]

NARRATIVE: CASE EVENT DATE: 20231022
